FAERS Safety Report 11216101 (Version 3)
Quarter: 2015Q3

REPORT INFORMATION
  Report Type: Spontaneous
  Country: US (occurrence: US)
  Receive Date: 20150624
  Receipt Date: 20150813
  Transmission Date: 20151125
  Serious: Yes (Hospitalization)
  Sender: FDA-Public Use
  Company Number: US-GLAXOSMITHKLINE-US2015088245

PATIENT
  Age: 77 Year
  Sex: Male

DRUGS (1)
  1. VENTOLIN HFA [Suspect]
     Active Substance: ALBUTEROL SULFATE
     Indication: CHRONIC OBSTRUCTIVE PULMONARY DISEASE
     Dosage: UNK
     Route: 055

REACTIONS (2)
  - Surgery [Unknown]
  - Overdose [Unknown]

NARRATIVE: CASE EVENT DATE: 20150618
